FAERS Safety Report 8666011 (Version 2)
Quarter: 2012Q4

REPORT INFORMATION
  Report Type: 
  Country: US (occurrence: US)
  Receive Date: 20120716
  Receipt Date: 20120917
  Transmission Date: 20130627
  Serious: Yes (Death)
  Sender: FDA-Public Use
  Company Number: PHEH2012US013794

PATIENT
  Age: 78 Year
  Sex: Female
  Weight: 41.7 kg

DRUGS (7)
  1. RECLAST [Suspect]
     Indication: OSTEOPOROSIS
     Dosage: 5mg/100  annually
     Route: 042
  2. RECLAST [Suspect]
     Dosage: 5mg/100 ml annually
     Route: 042
  3. RECLAST [Suspect]
     Dosage: 5mg/100 ml annually
     Route: 042
     Dates: start: 20110815
  4. MICARDIS [Concomitant]
     Dosage: 40 mg, QD
     Route: 048
  5. EFFEXOR [Concomitant]
     Dosage: 50 mg, QHS
     Route: 048
  6. XANAX [Concomitant]
     Dosage: 0.5 mg, QHS
     Route: 048
  7. VITAMIN D [Concomitant]
     Route: 048

REACTIONS (1)
  - Death [Fatal]
